FAERS Safety Report 5696514-7 (Version None)
Quarter: 2008Q2

REPORT INFORMATION
  Report Type: 
  Country: None (occurrence: None)
  Receive Date: 20080408
  Receipt Date: 20080328
  Transmission Date: 20081010
  Serious: Yes (Other)
  Sender: FDA-Public Use
  Company Number: FR-JNJFOC-20080400343

PATIENT
  Sex: Female
  Weight: 58 kg

DRUGS (10)
  1. LEUSTATIN [Suspect]
  2. LEUSTATIN [Suspect]
     Indication: HAIRY CELL LEUKAEMIA
  3. MABTHERA [Suspect]
     Route: 042
  4. MABTHERA [Suspect]
     Indication: HAIRY CELL LEUKAEMIA
     Route: 042
  5. SOLU-MEDROL [Concomitant]
     Route: 042
  6. SOLU-MEDROL [Concomitant]
     Indication: DRUG USE FOR UNKNOWN INDICATION
     Route: 042
  7. ZOPHREN [Concomitant]
     Indication: DRUG USE FOR UNKNOWN INDICATION
  8. WELLVONE [Concomitant]
     Indication: DRUG USE FOR UNKNOWN INDICATION
  9. VALACYCLOVIR [Concomitant]
     Indication: DRUG USE FOR UNKNOWN INDICATION
  10. ARANESP [Concomitant]
     Indication: DRUG USE FOR UNKNOWN INDICATION

REACTIONS (2)
  - DERMATITIS EXFOLIATIVE [None]
  - INFLAMMATION [None]
